FAERS Safety Report 7571804-1 (Version None)
Quarter: 2011Q2

REPORT INFORMATION
  Report Type: 
  Country: None (occurrence: None)
  Receive Date: 20110624
  Receipt Date: 20110613
  Transmission Date: 20111010
  Serious: Yes (Hospitalization, Other)
  Sender: FDA-Public Use
  Company Number: JP-ELI_LILLY_AND_COMPANY-JP201103002995

PATIENT
  Sex: Female

DRUGS (4)
  1. FORTEO [Suspect]
     Dosage: UNK UNK, QD
     Route: 058
     Dates: start: 20101111, end: 20110505
  2. LOXONIN [Concomitant]
     Route: 048
  3. CYTOTEC [Concomitant]
     Route: 048
  4. FORTEO [Suspect]
     Dosage: UNK, QD
     Route: 058
     Dates: start: 20110513

REACTIONS (4)
  - BACK PAIN [None]
  - ARRHYTHMIA [None]
  - FEELING ABNORMAL [None]
  - COMPRESSION FRACTURE [None]
